FAERS Safety Report 7366547-3 (Version None)
Quarter: 2011Q1

REPORT INFORMATION
  Report Type: 
  Country: None (occurrence: None)
  Receive Date: 20110322
  Receipt Date: 20110311
  Transmission Date: 20110831
  Serious: Yes (Hospitalization)
  Sender: FDA-Public Use
  Company Number: US-KINGPHARMUSA00001-K201100261

PATIENT
  Sex: Female

DRUGS (9)
  1. METFORMIN HCL [Suspect]
     Indication: TYPE 2 DIABETES MELLITUS
     Dosage: 2000 MG, UNK
     Dates: start: 20100823
  2. COUMADIN [Suspect]
     Dosage: UNK
  3. SEPTRA [Suspect]
     Dosage: 1600 MG, UNK
     Route: 048
     Dates: start: 20101205, end: 20101211
  4. SAXAGLIPTIN [Suspect]
     Indication: TYPE 2 DIABETES MELLITUS
     Dosage: UNK
     Dates: start: 20100823
  5. INSULIN GLARGINE [Suspect]
     Indication: TYPE 2 DIABETES MELLITUS
     Dosage: 35 U, UNK
  6. INSULIN LISPRO [Suspect]
     Indication: TYPE 2 DIABETES MELLITUS
     Dosage: 10 U, UNK
  7. PLACEBO [Suspect]
     Indication: TYPE 2 DIABETES MELLITUS
     Dosage: UNK
  8. ASPIRIN [Concomitant]
  9. GLUCAGON [Suspect]
     Indication: TYPE 2 DIABETES MELLITUS
     Dosage: 1 MG, UNK

REACTIONS (6)
  - PULMONARY OEDEMA [None]
  - NAUSEA [None]
  - DYSPNOEA [None]
  - DRUG INTERACTION [None]
  - INTERNATIONAL NORMALISED RATIO INCREASED [None]
  - CELLULITIS [None]
